FAERS Safety Report 14427136 (Version 1)
Quarter: 2018Q1

REPORT INFORMATION
  Report Type: Spontaneous
  Country: US (occurrence: US)
  Receive Date: 20180123
  Receipt Date: 20180123
  Transmission Date: 20180509
  Serious: No
  Sender: FDA-Public Use
  Company Number: US-IMPAX LABORATORIES, INC-2017-IPXL-03528

PATIENT
  Age: 65 Year
  Sex: Male

DRUGS (4)
  1. NEUPRO [Concomitant]
     Active Substance: ROTIGOTINE
     Dosage: 4 MG PATCH, UNK
     Route: 050
  2. RYTARY [Suspect]
     Active Substance: CARBIDOPA\LEVODOPA
     Indication: PARKINSON^S DISEASE
     Dosage: 36.25/145 MG, 2 CAPSULES 3 TIMES A DAY
     Route: 048
     Dates: start: 201709
  3. RYTARY [Suspect]
     Active Substance: CARBIDOPA\LEVODOPA
     Dosage: 36.25/145 MG, CUT DOWN THE DOSE, UNK
     Route: 048
     Dates: start: 2017
  4. NEUPRO [Concomitant]
     Active Substance: ROTIGOTINE
     Indication: PARKINSON^S DISEASE
     Dosage: 8 MG PATCH, UNK
     Route: 050

REACTIONS (4)
  - Hallucination, visual [Recovering/Resolving]
  - Blood glucose decreased [Unknown]
  - Labelled drug-food interaction medication error [Unknown]
  - Visual impairment [Not Recovered/Not Resolved]

NARRATIVE: CASE EVENT DATE: 2017
